FAERS Safety Report 8876358 (Version 1)
Quarter: 2012Q4

REPORT INFORMATION
  Report Type: 
  Country: US (occurrence: US)
  Receive Date: 20121023
  Receipt Date: 20121023
  Transmission Date: 20130627
  Serious: Yes (Life-Threatening, Other)
  Sender: FDA-Public Use
  Company Number: US-ASTELLAS-2012US001623

PATIENT
  Age: 66 Year
  Sex: Female

DRUGS (4)
  1. LEXISCAN [Suspect]
     Indication: SCAN MYOCARDIAL PERFUSION
     Dosage: Over 10 seconds
     Route: 042
     Dates: start: 20120131, end: 20120131
  2. ASPIRIN [Concomitant]
     Indication: PRODUCT USED FOR UNKNOWN INDICATION
     Dosage: 81 mg, UID/QD
     Route: 065
  3. AMLODIPINE [Concomitant]
     Indication: PRODUCT USED FOR UNKNOWN INDICATION
     Dosage: 5 mg, UID/QD
     Route: 048
  4. ZYRTEC [Concomitant]
     Indication: PRODUCT USED FOR UNKNOWN INDICATION
     Dosage: 10 mg, UID/QD
     Route: 048

REACTIONS (6)
  - Nausea [Unknown]
  - Retching [Unknown]
  - Bradycardia [Recovered/Resolved]
  - Urinary incontinence [Unknown]
  - Cardiac arrest [Recovered/Resolved]
  - Loss of consciousness [Recovered/Resolved]
